FAERS Safety Report 20623450 (Version 1)
Quarter: 2022Q1

REPORT INFORMATION
  Report Type: Report from Study
  Country: IT (occurrence: IT)
  Receive Date: 20220322
  Receipt Date: 20220322
  Transmission Date: 20220424
  Serious: Yes (Other)
  Sender: FDA-Public Use
  Company Number: IT-ViiV Healthcare Limited-IT2022GSK049673

PATIENT
  Sex: Male

DRUGS (5)
  1. DOLUTEGRAVIR [Suspect]
     Active Substance: DOLUTEGRAVIR
     Indication: Antiretroviral therapy
     Dosage: UNK
  2. DOLUTEGRAVIR [Suspect]
     Active Substance: DOLUTEGRAVIR
     Dosage: 50 MG, BID
     Dates: start: 2016
  3. MARAVIROC [Suspect]
     Active Substance: MARAVIROC
     Indication: Antiretroviral therapy
     Dosage: 300 MG, BID
  4. FOSTEMSAVIR [Suspect]
     Active Substance: FOSTEMSAVIR
     Indication: Antiretroviral therapy
     Dosage: 600 MG, BID
     Dates: start: 2016
  5. ATAZANAVIR\RITONAVIR [Suspect]
     Active Substance: ATAZANAVIR\RITONAVIR
     Indication: Antiretroviral therapy
     Dosage: UNK
     Dates: start: 2016

REACTIONS (7)
  - Pathogen resistance [Unknown]
  - Viral mutation identified [Unknown]
  - Virologic failure [Unknown]
  - Blood HIV RNA increased [Recovering/Resolving]
  - Drug resistance [Unknown]
  - Drug ineffective [Unknown]
  - Treatment noncompliance [Unknown]
